FAERS Safety Report 8085443-X (Version None)
Quarter: 2012Q1

REPORT INFORMATION
  Report Type: 
  Country: None (occurrence: None)
  Receive Date: 20120128
  Receipt Date: 20110607
  Transmission Date: 20120608
  Serious: No
  Sender: FDA-Public Use
  Company Number: US-ABBOTT-11P-163-0701609-00

PATIENT
  Sex: Female
  Weight: 65.376 kg

DRUGS (7)
  1. HUMIRA [Suspect]
     Dates: end: 20110603
  2. PENTASA [Concomitant]
  3. HUMIRA [Suspect]
     Indication: CROHN'S DISEASE
     Dosage: LOADING DOSE
     Route: 058
     Dates: start: 20110114, end: 20110114
  4. PREDNISONE TAB [Concomitant]
     Indication: PRODUCT USED FOR UNKNOWN INDICATION
     Dosage: TAPERING DOSE
  5. PENTASA [Concomitant]
     Indication: PRODUCT USED FOR UNKNOWN INDICATION
  6. HUMIRA [Suspect]
     Dates: start: 20110129, end: 20110129
  7. MULTI-VITAMINS [Concomitant]
     Indication: PREGNANCY

REACTIONS (3)
  - INJECTION SITE PAIN [None]
  - CROHN'S DISEASE [None]
  - APHAGIA [None]
